FAERS Safety Report 9248990 (Version 1)
Quarter: 2013Q1

REPORT INFORMATION
  Report Type: Spontaneous
  Country: US (occurrence: None)
  Receive Date: 20130305
  Receipt Date: 20130305
  Transmission Date: 20140127
  Serious: Yes (Other)
  Sender: FDA-Public Use
  Company Number: 163-21880-12092481 (0)

PATIENT
  Age: 58 Year
  Sex: Female
  Weight: 67.5 kg

DRUGS (7)
  1. REVLIMID [Suspect]
     Indication: PLASMA CELL MYELOMA
     Dosage: 21 IN 21 D
     Route: 048
     Dates: start: 20120912, end: 20120915
  2. STOOL SOFTENER (DOCUSATE SODIUM) [Suspect]
  3. VITAMIN D (ERGOCALCIFEROL) [Suspect]
  4. OMEGA 3 (FISH OIL) [Suspect]
  5. PROCHLORPERAZINE [Suspect]
  6. CALCIUM (CALCIUM) [Suspect]
  7. IBUPROFEN (IBUPROFEN) [Suspect]

REACTIONS (5)
  - Hypersensitivity [None]
  - Swelling face [None]
  - Rash [None]
  - Pruritus [None]
  - Urticaria [None]
